FAERS Safety Report 6466646-4 (Version None)
Quarter: 2009Q4

REPORT INFORMATION
  Report Type: 
  Country: None (occurrence: None)
  Receive Date: 20091202
  Receipt Date: 20091120
  Transmission Date: 20100525
  Serious: Yes (Other)
  Sender: FDA-Public Use
  Company Number: BR-PFIZER INC-2009301114

PATIENT
  Age: 50 Year
  Sex: Male
  Weight: 88 kg

DRUGS (3)
  1. VIAGRA [Suspect]
     Indication: ERECTILE DYSFUNCTION
     Dosage: 50 MG, AS NEEDED
     Route: 048
     Dates: start: 20070101, end: 20090101
  2. METFORMIN [Concomitant]
     Indication: BLOOD GLUCOSE INCREASED
     Dosage: UNK
     Dates: start: 20060101
  3. GLIMEPIRIDE [Concomitant]
     Indication: BLOOD GLUCOSE INCREASED
     Dosage: UNK
     Dates: start: 20060101

REACTIONS (3)
  - BLOOD GLUCOSE INCREASED [None]
  - BLOOD TRIGLYCERIDES INCREASED [None]
  - DRUG INEFFECTIVE [None]
